FAERS Safety Report 17246316 (Version 1)
Quarter: 2020Q1

REPORT INFORMATION
  Report Type: Spontaneous
  Country: US (occurrence: US)
  Receive Date: 20200108
  Receipt Date: 20200108
  Transmission Date: 20200409
  Serious: Yes (Hospitalization)
  Sender: FDA-Public Use
  Company Number: US-SA-2019SA169413

PATIENT
  Age: 82 Year
  Sex: Female

DRUGS (2)
  1. PRALUENT [Suspect]
     Active Substance: ALIROCUMAB
     Indication: BLOOD CHOLESTEROL INCREASED
     Dosage: 75 MG, QOW
     Dates: start: 20190605, end: 2019
  2. PRALUENT [Suspect]
     Active Substance: ALIROCUMAB
     Dosage: 75 MG, QOW
     Dates: start: 201911

REACTIONS (5)
  - Cough [Unknown]
  - Malaise [Unknown]
  - Intestinal mass [Unknown]
  - Myalgia [Unknown]
  - Injection site mass [Unknown]

NARRATIVE: CASE EVENT DATE: 2019
